FAERS Safety Report 9250014 (Version 2)
Quarter: 2013Q3

REPORT INFORMATION
  Report Type: Spontaneous
  Country: US (occurrence: US)
  Receive Date: 20130424
  Receipt Date: 20130705
  Transmission Date: 20140515
  Serious: Yes (Hospitalization, Disabling, Other)
  Sender: FDA-Public Use
  Company Number: US-ASTRAZENECA-2013SE27312

PATIENT
  Age: 33 Year
  Sex: Male
  Weight: 79.4 kg

DRUGS (7)
  1. NEXIUM [Suspect]
     Indication: GASTROOESOPHAGEAL REFLUX DISEASE
     Dosage: ONE TIMES A DAY
     Route: 048
     Dates: start: 1997
  2. NEXIUM [Suspect]
     Indication: GASTROOESOPHAGEAL REFLUX DISEASE
     Dosage: 20-40 MG
     Route: 048
     Dates: start: 2003
  3. NEXIUM [Suspect]
     Indication: GASTROOESOPHAGEAL REFLUX DISEASE
     Route: 048
     Dates: start: 20120605
  4. PRILOSEC [Suspect]
     Dosage: 20-40 MG
     Route: 048
     Dates: start: 1997
  5. PREVACID [Concomitant]
     Dates: start: 1999, end: 2006
  6. ACIPHEX [Concomitant]
     Dates: start: 2002, end: 2012
  7. ZANTAC [Concomitant]
     Dates: start: 2002, end: 2012

REACTIONS (11)
  - Lumbar vertebral fracture [Unknown]
  - Bone pain [Unknown]
  - Neoplasm malignant [Unknown]
  - Cholangiocarcinoma [Unknown]
  - Hepatic cancer [Unknown]
  - Back pain [Unknown]
  - Osteoporosis [Unknown]
  - Bone density decreased [Unknown]
  - Arthritis [Unknown]
  - Multiple fractures [Unknown]
  - Depression [Unknown]
